FAERS Safety Report 25211296 (Version 3)
Quarter: 2025Q2

REPORT INFORMATION
  Report Type: Report from Study
  Country: US (occurrence: US)
  Receive Date: 20250417
  Receipt Date: 20250506
  Transmission Date: 20250717
  Serious: Yes (Hospitalization, Other)
  Sender: ABBVIE
  Company Number: US-ABBVIE-6234218

PATIENT
  Age: 66 Year
  Sex: Female

DRUGS (1)
  1. VRAYLAR [Suspect]
     Active Substance: CARIPRAZINE
     Indication: Depression
     Dosage: FORM STRENGTH 1.5 MILLIGRAM
     Route: 048
     Dates: start: 2023

REACTIONS (7)
  - Intervertebral disc protrusion [Unknown]
  - Stress fracture [Unknown]
  - Bronchitis [Unknown]
  - Foot fracture [Unknown]
  - Bone disorder [Unknown]
  - Sinusitis [Unknown]
  - Eczema [Unknown]

NARRATIVE: CASE EVENT DATE: 20241001
